FAERS Safety Report 8983981 (Version 1)
Quarter: 2012Q4

REPORT INFORMATION
  Report Type: Spontaneous
  Country: US (occurrence: None)
  Receive Date: 20121218
  Receipt Date: 20121218
  Transmission Date: 20130627
  Serious: Yes (Hospitalization, Other)
  Sender: FDA-Public Use
  Company Number: None

PATIENT
  Age: 42 Year
  Sex: Female
  Weight: 61.24 kg

DRUGS (1)
  1. CYMBALTA [Suspect]
     Indication: DEPRESSION
     Dosage: 60mg  QHS
     Route: 048
     Dates: start: 20120801, end: 20121001

REACTIONS (3)
  - Grand mal convulsion [None]
  - Withdrawal syndrome [None]
  - Product label issue [None]
